FAERS Safety Report 9472274 (Version 1)
Quarter: 2013Q3

REPORT INFORMATION
  Report Type: Spontaneous
  Country: US (occurrence: US)
  Receive Date: 20130823
  Receipt Date: 20130823
  Transmission Date: 20140515
  Serious: Yes (Other)
  Sender: FDA-Public Use
  Company Number: US-UCBSA-095800

PATIENT
  Age: 69 Year
  Sex: Female

DRUGS (5)
  1. CIMZIA [Suspect]
     Indication: RHEUMATOID ARTHRITIS
     Dates: start: 201302, end: 20130611
  2. COZAAR [Concomitant]
  3. NORVASC [Concomitant]
  4. LEVOTHYROXINE [Concomitant]
  5. PREDNISONE [Concomitant]
     Dosage: PATCH

REACTIONS (1)
  - Herpes zoster [Not Recovered/Not Resolved]
